FAERS Safety Report 4633743-5 (Version None)
Quarter: 2005Q2

REPORT INFORMATION
  Report Type: 
  Country: None (occurrence: None)
  Receive Date: 20050331
  Receipt Date: 20040113
  Transmission Date: 20051028
  Serious: Yes (Other)
  Sender: FDA-Public Use
  Company Number: 200410223BCC

PATIENT
  Age: 75 Year
  Sex: Female
  Weight: 88.4514 kg

DRUGS (14)
  1. ALEVE [Suspect]
     Indication: HEADACHE
     Dosage: 440 MG, ONCE, ORAL
     Route: 048
     Dates: start: 20031130
  2. ALEVE [Suspect]
     Dosage: 440 MG, PRN, ORAL
     Route: 048
     Dates: start: 20031101
  3. ATENOLOL [Concomitant]
  4. ALTACE [Concomitant]
  5. NEXIUM [Concomitant]
  6. ASPIRIN [Concomitant]
  7. CALCIUM GLUCONATE [Concomitant]
  8. MIACALCIN [Concomitant]
  9. LIPITOR [Concomitant]
  10. VITAMIN E [Concomitant]
  11. GLUCOSAMINE [Concomitant]
  12. OMEGA FISH OIL [Concomitant]
  13. DARVOCET-N 100 [Concomitant]
  14. EXCEDRIN (MIGRAINE) [Concomitant]

REACTIONS (7)
  - ANAPHYLACTIC SHOCK [None]
  - DYSPHONIA [None]
  - HYPOTENSION [None]
  - PERIPHERAL CIRCULATORY FAILURE [None]
  - PRURITUS [None]
  - RASH [None]
  - THROAT TIGHTNESS [None]
